FAERS Safety Report 9158248 (Version 3)
Quarter: 2013Q2

REPORT INFORMATION
  Report Type: Spontaneous
  Country: DE (occurrence: DE)
  Receive Date: 20130312
  Receipt Date: 20130614
  Transmission Date: 20140414
  Serious: Yes (Death)
  Sender: FDA-Public Use
  Company Number: DE-ROCHE-1200929

PATIENT
  Age: 89 Year
  Sex: Female

DRUGS (5)
  1. LUCENTIS [Suspect]
     Indication: PRODUCT USED FOR UNKNOWN INDICATION
     Dosage: DATE OF LAST DOSE PRIOR TO SAE: 02 JAN 2013
     Route: 050
  2. BISOPROLOL [Concomitant]
     Route: 065
     Dates: start: 1990
  3. ACETYLSALICYLIC ACID [Concomitant]
     Route: 065
     Dates: start: 1990
  4. RAMIPRIL [Concomitant]
     Route: 065
     Dates: start: 1990
  5. FUROSEMIDE [Concomitant]
     Route: 065
     Dates: start: 1990

REACTIONS (1)
  - Cerebrovascular accident [Fatal]
